FAERS Safety Report 7382911-0 (Version None)
Quarter: 2011Q1

REPORT INFORMATION
  Report Type: 
  Country: None (occurrence: None)
  Receive Date: 20110330
  Receipt Date: 20110310
  Transmission Date: 20110831
  Serious: Yes (Death, Hospitalization, Other)
  Sender: FDA-Public Use
  Company Number: US-BAYER-201010445NA

PATIENT
  Sex: Female

DRUGS (7)
  1. CEFAZOLIN [Concomitant]
     Dosage: 1 GM
     Route: 042
     Dates: start: 20001025, end: 20001025
  2. DOPAMINE HYDROCHLORIDE [Concomitant]
     Dosage: UNK
     Route: 042
     Dates: start: 20001025, end: 20001025
  3. NIPRIDE [Concomitant]
     Dosage: UNK
     Route: 042
     Dates: start: 20001025, end: 20001025
  4. HEPARIN SODIUM [Concomitant]
     Dosage: 21,000 UNITS
     Route: 042
     Dates: start: 20001025, end: 20001025
  5. TRASYLOL [Suspect]
     Indication: CORONARY ARTERY BYPASS
     Route: 042
     Dates: start: 20001025
  6. TRASYLOL [Suspect]
     Indication: AORTIC VALVE REPLACEMENT
  7. PROTAMINE SULFATE [Concomitant]
     Dosage: 370 GM
     Route: 042
     Dates: start: 20001025, end: 20001025

REACTIONS (14)
  - EMOTIONAL DISTRESS [None]
  - UNEVALUABLE EVENT [None]
  - DEATH [None]
  - INJURY [None]
  - CEREBROVASCULAR ACCIDENT [None]
  - RENAL IMPAIRMENT [None]
  - FEAR [None]
  - PAIN [None]
  - RENAL FAILURE [None]
  - ANHEDONIA [None]
  - MULTI-ORGAN FAILURE [None]
  - RENAL INJURY [None]
  - STRESS [None]
  - ANXIETY [None]
